FAERS Safety Report 7440812-3 (Version None)
Quarter: 2011Q2

REPORT INFORMATION
  Report Type: 
  Country: None (occurrence: None)
  Receive Date: 20110427
  Receipt Date: 20110425
  Transmission Date: 20111010
  Serious: Yes (Hospitalization)
  Sender: FDA-Public Use
  Company Number: US-PFIZER INC-2011089460

PATIENT
  Sex: Female
  Weight: 70.3 kg

DRUGS (2)
  1. SORAFENIB [Suspect]
     Dosage: 200 MG, 1X/DAY
     Route: 048
     Dates: start: 20101015
  2. TEMSIROLIMUS [Suspect]
     Indication: HEPATIC NEOPLASM MALIGNANT
     Dosage: 10 MG, WEEKLY
     Route: 042
     Dates: start: 20101011

REACTIONS (6)
  - TUMOUR HAEMORRHAGE [None]
  - ISCHAEMIC HEPATITIS [None]
  - PERITONEAL HAEMORRHAGE [None]
  - SHOCK [None]
  - RENAL FAILURE ACUTE [None]
  - RENAL TUBULAR NECROSIS [None]
